FAERS Safety Report 22166247 (Version 1)
Quarter: 2023Q1

REPORT INFORMATION
  Report Type: Spontaneous
  Country: US (occurrence: None)
  Receive Date: 20230331
  Receipt Date: 20230331
  Transmission Date: 20230418
  Serious: Yes (Hospitalization)
  Sender: FDA-Public Use
  Company Number: None

PATIENT
  Age: 71 Year
  Sex: Male
  Weight: 130.9 kg

DRUGS (1)
  1. PEMBROLIZUMAB [Suspect]
     Active Substance: PEMBROLIZUMAB
     Indication: Bladder cancer
     Dates: start: 20220517

REACTIONS (3)
  - Diabetic ketoacidosis [None]
  - Type 1 diabetes mellitus [None]
  - Type 1 diabetes mellitus [None]

NARRATIVE: CASE EVENT DATE: 20220709
